FAERS Safety Report 6312941-9 (Version None)
Quarter: 2009Q3

REPORT INFORMATION
  Report Type: 
  Country: None (occurrence: None)
  Receive Date: 20090818
  Receipt Date: 20090522
  Transmission Date: 20100115
  Serious: No
  Sender: FDA-Public Use
  Company Number: US-BAYER-200921780NA

PATIENT
  Age: 39 Year
  Sex: Female

DRUGS (1)
  1. YAZ [Suspect]
     Indication: MENOMETRORRHAGIA
     Route: 048
     Dates: start: 20090410, end: 20090525

REACTIONS (5)
  - ABDOMINAL DISTENSION [None]
  - ACNE [None]
  - MENORRHAGIA [None]
  - NO ADVERSE EVENT [None]
  - WEIGHT INCREASED [None]
